FAERS Safety Report 13331355 (Version 1)
Quarter: 2017Q1

REPORT INFORMATION
  Report Type: Spontaneous
  Country: US (occurrence: US)
  Receive Date: 20170313
  Receipt Date: 20170313
  Transmission Date: 20170428
  Serious: No
  Sender: FDA-Public Use
  Company Number: None

PATIENT
  Age: 8 Year
  Sex: Male
  Weight: 31.5 kg

DRUGS (3)
  1. CHILDRENS ALLERGY RELIEF (CETIRIZINE HYDROCHLORIDE) [Suspect]
     Active Substance: CETIRIZINE HYDROCHLORIDE
     Indication: SEASONAL ALLERGY
     Dosage: ?          OTHER STRENGTH:MG/ML;QUANTITY:10 ML;?
     Route: 048
     Dates: start: 20170214, end: 20170313
  2. VITAMIN D3 [Concomitant]
     Active Substance: CHOLECALCIFEROL
  3. MULTIVITAMIN/MULTIMINERAL [Concomitant]
     Active Substance: MINERALS\VITAMINS

REACTIONS (6)
  - Tic [None]
  - Posture abnormal [None]
  - Eye movement disorder [None]
  - Cough [None]
  - Protrusion tongue [None]
  - Dyskinesia [None]

NARRATIVE: CASE EVENT DATE: 20170308
